FAERS Safety Report 18238014 (Version 1)
Quarter: 2020Q3

REPORT INFORMATION
  Report Type: Report from Study
  Country: FR (occurrence: FR)
  Receive Date: 20200907
  Receipt Date: 20200907
  Transmission Date: 20201103
  Serious: Yes (Death)
  Sender: FDA-Public Use
  Company Number: FR-PFIZER INC-2020343174

PATIENT

DRUGS (2)
  1. GEMCITABINE HYDROCHLORIDE. [Suspect]
     Active Substance: GEMCITABINE HYDROCHLORIDE
     Indication: BLADDER CANCER
     Dosage: 1250 MG/M2, CYCLIC (ON DAYS 1 AND 8; EVERY 3 WK FOR A TOTAL OF FOUR CYCLES)
  2. CISPLATIN. [Suspect]
     Active Substance: CISPLATIN
     Indication: BLADDER CANCER
     Dosage: 70 MG/M2, CYCLIC (ON DAY 1, EVERY 3 WK FOR A TOTAL OF FOUR CYCLES)

REACTIONS (1)
  - Death [Fatal]
